FAERS Safety Report 17774242 (Version 3)
Quarter: 2020Q2

REPORT INFORMATION
  Report Type: Spontaneous
  Country: US (occurrence: US)
  Receive Date: 20200513
  Receipt Date: 20200602
  Transmission Date: 20200714
  Serious: No
  Sender: FDA-Public Use
  Company Number: US-JNJFOC-20200415752

PATIENT
  Sex: Female

DRUGS (2)
  1. PEPCID COMPLETE [Suspect]
     Active Substance: CALCIUM CARBONATE\FAMOTIDINE\MAGNESIUM HYDROXIDE
     Indication: DYSPEPSIA
     Dosage: ONE DOSE IN THE MORNING BEFORE BREAKFAST
     Route: 048
     Dates: start: 20200325, end: 2020
  2. PEPCID COMPLETE [Suspect]
     Active Substance: CALCIUM CARBONATE\FAMOTIDINE\MAGNESIUM HYDROXIDE
     Indication: DYSPEPSIA

REACTIONS (1)
  - Therapeutic product effect incomplete [Unknown]
